FAERS Safety Report 5441781-8 (Version None)
Quarter: 2007Q3

REPORT INFORMATION
  Report Type: 
  Country: None (occurrence: None)
  Receive Date: 20070904
  Receipt Date: 20070823
  Transmission Date: 20080115
  Serious: No
  Sender: FDA-Public Use
  Company Number: US-SANOFI-SYNTHELABO-A03200704558

PATIENT
  Sex: Female
  Weight: 72.1 kg

DRUGS (1)
  1. AMBIEN [Suspect]
     Indication: INSOMNIA
     Route: 048
     Dates: start: 20070619, end: 20070620

REACTIONS (5)
  - MUSCLE RIGIDITY [None]
  - MUSCULOSKELETAL PAIN [None]
  - RADICULOPATHY [None]
  - ROTATOR CUFF SYNDROME [None]
  - UNRESPONSIVE TO STIMULI [None]
